FAERS Safety Report 23235222 (Version 1)
Quarter: 2023Q4

REPORT INFORMATION
  Report Type: Spontaneous
  Country: CA (occurrence: CA)
  Receive Date: 20231128
  Receipt Date: 20231128
  Transmission Date: 20240109
  Serious: Yes (Other)
  Sender: FDA-Public Use
  Company Number: CA-002147023-PHHY2019CA005108

PATIENT
  Sex: Male

DRUGS (14)
  1. COSENTYX [Suspect]
     Active Substance: SECUKINUMAB
     Indication: Psoriatic arthropathy
     Dosage: 150 MG, QMO (SENSOREADY PEN)
     Route: 058
     Dates: start: 20180805, end: 20181228
  2. COSENTYX [Suspect]
     Active Substance: SECUKINUMAB
     Dosage: 150 MG
     Route: 058
  3. COSENTYX [Suspect]
     Active Substance: SECUKINUMAB
     Dosage: UNK
     Route: 042
     Dates: end: 20190108
  4. CYMBALTA [Suspect]
     Active Substance: DULOXETINE HYDROCHLORIDE
     Indication: Product used for unknown indication
     Dosage: UNK
     Route: 065
  5. DICLOFENAC [Suspect]
     Active Substance: DICLOFENAC
     Indication: Product used for unknown indication
     Dosage: UNK UNK, BID
     Route: 048
     Dates: start: 20140424, end: 201409
  6. DICLOFENAC [Suspect]
     Active Substance: DICLOFENAC
     Dosage: UNK, BID
     Route: 048
  7. LEFLUNOMIDE [Suspect]
     Active Substance: LEFLUNOMIDE
     Indication: Product used for unknown indication
     Dosage: UNK (STRENGH 10 TO 20 MG)
     Route: 048
     Dates: start: 20140602, end: 20160627
  8. LYRICA [Suspect]
     Active Substance: PREGABALIN
     Indication: Product used for unknown indication
     Dosage: UNK
     Route: 065
  9. METHOTREXATE [Suspect]
     Active Substance: METHOTREXATE
     Indication: Product used for unknown indication
     Dosage: 15 MG, QW
     Route: 058
     Dates: start: 201611
  10. METHOTREXATE [Suspect]
     Active Substance: METHOTREXATE
     Dosage: 20 MG, QW
     Route: 048
  11. METHOTREXATE [Suspect]
     Active Substance: METHOTREXATE
     Dosage: UNK
     Route: 048
  12. METHOTREXATE [Suspect]
     Active Substance: METHOTREXATE
     Dosage: UNK
     Route: 058
  13. NAPROXEN [Concomitant]
     Active Substance: NAPROXEN
     Indication: Product used for unknown indication
     Dosage: UNK
     Route: 065
     Dates: start: 201409, end: 20141219
  14. NAPROXEN [Concomitant]
     Active Substance: NAPROXEN
     Dosage: UNK
     Route: 065

REACTIONS (11)
  - Ankylosing spondylitis [Not Recovered/Not Resolved]
  - Feeling abnormal [Not Recovered/Not Resolved]
  - Eczema [Not Recovered/Not Resolved]
  - Intervertebral disc degeneration [Not Recovered/Not Resolved]
  - Back pain [Not Recovered/Not Resolved]
  - Undifferentiated connective tissue disease [Not Recovered/Not Resolved]
  - Thyroid disorder [Not Recovered/Not Resolved]
  - Arthropathy [Not Recovered/Not Resolved]
  - Arthralgia [Not Recovered/Not Resolved]
  - Rash [Not Recovered/Not Resolved]
  - Psoriasis [Not Recovered/Not Resolved]
